FAERS Safety Report 7275548-5 (Version None)
Quarter: 2011Q1

REPORT INFORMATION
  Report Type: 
  Country: None (occurrence: None)
  Receive Date: 20110204
  Receipt Date: 20110125
  Transmission Date: 20110831
  Serious: Yes (Hospitalization)
  Sender: FDA-Public Use
  Company Number: GB-JNJFOC-20110107022

PATIENT
  Age: 17 Year
  Sex: Male

DRUGS (2)
  1. PARACETAMOL [Suspect]
     Indication: PRODUCT USED FOR UNKNOWN INDICATION
     Route: 048
  2. PARACETAMOL [Suspect]
     Route: 048

REACTIONS (6)
  - HYPERVENTILATION [None]
  - METABOLIC ACIDOSIS [None]
  - PROTHROMBIN TIME PROLONGED [None]
  - INTENTIONAL OVERDOSE [None]
  - COMA [None]
  - PNEUMONIA [None]
